FAERS Safety Report 11202483 (Version 1)
Quarter: 2015Q2

REPORT INFORMATION
  Report Type: Spontaneous
  Country: DK (occurrence: RU)
  Receive Date: 20150619
  Receipt Date: 20150619
  Transmission Date: 20150821
  Serious: Yes (Life-Threatening, Hospitalization)
  Sender: FDA-Public Use
  Company Number: RU-FRI-1000077462

PATIENT
  Sex: Male

DRUGS (2)
  1. CITALOPRAM [Suspect]
     Active Substance: CITALOPRAM HYDROBROMIDE
     Indication: PRODUCT USED FOR UNKNOWN INDICATION
     Route: 065
  2. ANTIHISTAMINE [Suspect]
     Active Substance: UNSPECIFIED INGREDIENT
     Indication: SEASONAL ALLERGY
     Route: 045

REACTIONS (1)
  - Acute kidney injury [Recovering/Resolving]
